FAERS Safety Report 5485618-X (Version None)
Quarter: 2007Q4

REPORT INFORMATION
  Report Type: 
  Country: None (occurrence: None)
  Receive Date: 20071015
  Receipt Date: 20071010
  Transmission Date: 20080405
  Serious: Yes (Other)
  Sender: FDA-Public Use
  Company Number: US-ELI_LILLY_AND_COMPANY-US200709000760

PATIENT
  Sex: Male

DRUGS (2)
  1. CIALIS [Suspect]
     Indication: ERECTILE DYSFUNCTION
     Dosage: 10 MG, UNK
     Dates: start: 20050101
  2. CIALIS [Suspect]
     Dosage: 10 MG, AS NEEDED
     Dates: start: 20070711

REACTIONS (6)
  - BLINDNESS UNILATERAL [None]
  - DEHYDRATION [None]
  - DIZZINESS [None]
  - DYSENTERY [None]
  - FOOD POISONING [None]
  - OPTIC NERVE DISORDER [None]
